FAERS Safety Report 8283334-2 (Version None)
Quarter: 2012Q2

REPORT INFORMATION
  Report Type: 
  Country: None (occurrence: None)
  Receive Date: 20120413
  Receipt Date: 20120409
  Transmission Date: 20120825
  Serious: Yes (Other)
  Sender: FDA-Public Use
  Company Number: US-ABBOTT-12P-163-0906085-00

PATIENT
  Sex: Female
  Weight: 64.922 kg

DRUGS (3)
  1. UNKNOWN MEDICATION [Concomitant]
     Indication: HYPERSENSITIVITY
  2. HUMIRA [Suspect]
     Indication: CROHN'S DISEASE
     Route: 058
     Dates: start: 20110301, end: 20110401
  3. UNKNOWN BIRTH CONTROL [Concomitant]
     Indication: PRODUCT USED FOR UNKNOWN INDICATION

REACTIONS (7)
  - CROHN'S DISEASE [None]
  - ACTIVITIES OF DAILY LIVING IMPAIRED [None]
  - COLITIS ULCERATIVE [None]
  - MALAISE [None]
  - ASTHENIA [None]
  - DIARRHOEA [None]
  - DEHYDRATION [None]
